FAERS Safety Report 8544480-9 (Version None)
Quarter: 2012Q3

REPORT INFORMATION
  Report Type: 
  Country: None (occurrence: None)
  Receive Date: 20120717
  Receipt Date: 20120703
  Transmission Date: 20120928
  Serious: Yes (Other)
  Sender: FDA-Public Use
  Company Number: QSC-2012-0116

PATIENT
  Age: 43 Year
  Sex: Female

DRUGS (20)
  1. FOLIC ACID [Concomitant]
  2. CRANBERRY (VACCINIUM MACROCARPON) [Concomitant]
  3. HYDROCHLOROTHIAZIDE [Concomitant]
  4. LEXAPRO [Concomitant]
  5. PROMETHAZINE [Concomitant]
  6. AMOXICILLIN [Concomitant]
  7. VIT D (ERGOCALCIFEROL) [Concomitant]
  8. VIT C (ASCORBIC ACID) [Concomitant]
  9. BISACODYL [Concomitant]
  10. HYDROCODONE BITARTRATE + ACETAMINOPHEN [Concomitant]
  11. GABAPENTIN [Concomitant]
  12. DONEPEZIL HCL [Concomitant]
  13. LOPERAMIDE [Concomitant]
  14. NYSTOP (NYSTATIN) [Concomitant]
  15. LORATADINE [Concomitant]
  16. PROVIGIL [Concomitant]
  17. H.P. ACTHAR GEL [Suspect]
     Indication: MULTIPLE SCLEROSIS
     Dosage: 80 UNITS, QD, SUBCUTANEOUS
     Route: 058
     Dates: start: 20120524, end: 20120527
  18. BACLOFEN [Concomitant]
  19. COUMADIN [Concomitant]
  20. TEMAZEPAM [Concomitant]

REACTIONS (3)
  - STEVENS-JOHNSON SYNDROME [None]
  - ERYTHEMA MULTIFORME [None]
  - DRUG HYPERSENSITIVITY [None]
